FAERS Safety Report 9594811 (Version 1)
Quarter: 2013Q4

REPORT INFORMATION
  Report Type: Spontaneous
  Country: US (occurrence: US)
  Receive Date: 20131004
  Receipt Date: 20131004
  Transmission Date: 20140711
  Serious: No
  Sender: FDA-Public Use
  Company Number: US-PURDUE-USA-2012-0091309

PATIENT
  Sex: Male

DRUGS (3)
  1. BUTRANS [Suspect]
     Indication: PAIN
     Dosage: 10 MCG/HR, UNK
     Route: 062
     Dates: start: 201112
  2. BUTRANS [Suspect]
     Dosage: 5 MCG/HR, UNK
     Route: 062
     Dates: start: 201201
  3. BUTRANS [Suspect]
     Dosage: 20 MCG/HR, UNK
     Route: 062
     Dates: start: 201112, end: 201112

REACTIONS (6)
  - Activities of daily living impaired [Recovered/Resolved]
  - Drug effect incomplete [Recovered/Resolved]
  - Extra dose administered [Unknown]
  - Drug effect increased [Recovered/Resolved]
  - Nausea [Recovered/Resolved]
  - Dizziness [Recovered/Resolved]
